FAERS Safety Report 18406368 (Version 1)
Quarter: 2020Q4

REPORT INFORMATION
  Report Type: Spontaneous
  Country: ES (occurrence: ES)
  Receive Date: 20201020
  Receipt Date: 20201020
  Transmission Date: 20210114
  Serious: Yes (Life-Threatening, Hospitalization)
  Sender: FDA-Public Use
  Company Number: NVSC2020ES281399

PATIENT
  Age: 58 Year
  Sex: Female

DRUGS (8)
  1. SEROXAT [Concomitant]
     Active Substance: PAROXETINE HYDROCHLORIDE
     Indication: PRODUCT USED FOR UNKNOWN INDICATION
     Dosage: UNK ( 20 MG COMPRIMIDOS RECUBIERTOS CON PELICULA, 28 COMPRIMIDOS)
     Route: 065
  2. ABILIFY [Concomitant]
     Active Substance: ARIPIPRAZOLE
     Indication: PRODUCT USED FOR UNKNOWN INDICATION
     Dosage: UNK ( 10 MG COMPRIMIDOS, 28 COMPRIMIDOS)
     Route: 065
  3. QUETIAPINA [Concomitant]
     Active Substance: QUETIAPINE
     Indication: PRODUCT USED FOR UNKNOWN INDICATION
     Dosage: UNK ( 100 MG 60 COMPRIMIDOS)
     Route: 065
  4. BETMIGA [Concomitant]
     Active Substance: MIRABEGRON
     Indication: PRODUCT USED FOR UNKNOWN INDICATION
     Dosage: UNK ( 50 MG COMPRIMIDOS DE LIBERACION PROLONGADA, 30 COMPRIMIDOS)
     Route: 065
  5. CIPROFLOXACINE [Suspect]
     Active Substance: CIPROFLOXACIN
     Indication: URINARY TRACT INFECTION
     Dosage: 500 MG, Q12H (500 MG/12 H)
     Route: 048
     Dates: start: 20200927, end: 20201005
  6. VESICARE [Concomitant]
     Active Substance: SOLIFENACIN SUCCINATE
     Indication: PRODUCT USED FOR UNKNOWN INDICATION
     Dosage: UNK (  10 MG COMPRIMIDOS RECUBIERTOS CON PELICULA, 30 COMPRIMIDOS)
     Route: 065
  7. KEPPRA [Concomitant]
     Active Substance: LEVETIRACETAM
     Indication: PRODUCT USED FOR UNKNOWN INDICATION
     Dosage: UNK ( 500 MG COMPRIMIDOS RECUBIERTOS CON PELICULA, 60 COOMPRIMIDOS)
     Route: 065
  8. NEXIUM [Concomitant]
     Active Substance: ESOMEPRAZOLE MAGNESIUM
     Indication: PRODUCT USED FOR UNKNOWN INDICATION
     Dosage: UNK ( 20 MG COMPRIMIDOS GASTRORRESISTENTES, 28 COMPRIMIDOS)
     Route: 065

REACTIONS (1)
  - Catatonia [Not Recovered/Not Resolved]

NARRATIVE: CASE EVENT DATE: 20201005
